FAERS Safety Report 24246931 (Version 2)
Quarter: 2024Q4

REPORT INFORMATION
  Report Type: Spontaneous
  Country: CA (occurrence: CA)
  Receive Date: 20240826
  Receipt Date: 20241016
  Transmission Date: 20250115
  Serious: Yes (Other)
  Sender: CELLTRION
  Company Number: CA-PFIZER INC-202400197873

PATIENT

DRUGS (4)
  1. INFLECTRA [Suspect]
     Active Substance: INFLIXIMAB-DYYB
     Indication: Crohn^s disease
     Dosage: 400 MG, EVERY 8 WEEK
     Route: 042
     Dates: start: 20240426
  2. INFLECTRA [Suspect]
     Active Substance: INFLIXIMAB-DYYB
     Dosage: 400 MG, EVERY 8 WEEK(7 WEEKS AND 5 DAYS)
     Route: 042
     Dates: start: 20240619
  3. INFLECTRA [Suspect]
     Active Substance: INFLIXIMAB-DYYB
     Dosage: 400 MG, AFTER 8 WEEKS DAY 1 DAY (EVERY 8 WEEKS)
     Route: 042
     Dates: start: 20240815
  4. INFLECTRA [Suspect]
     Active Substance: INFLIXIMAB-DYYB
     Dosage: 400 MG, 7 WEEKS AND 5 DAYS (400 MG, EVERY 8 WEEKS)
     Route: 042
     Dates: start: 20241008

REACTIONS (5)
  - Blood pressure increased [Not Recovered/Not Resolved]
  - Headache [Unknown]
  - Off label use [Unknown]
  - Intentional product use issue [Unknown]
  - Off label use [Unknown]

NARRATIVE: CASE EVENT DATE: 20240619
